FAERS Safety Report 22285538 (Version 2)
Quarter: 2023Q2

REPORT INFORMATION
  Report Type: Spontaneous
  Country: BR (occurrence: BR)
  Receive Date: 20230504
  Receipt Date: 20230512
  Transmission Date: 20230722
  Serious: Yes (Other)
  Sender: FDA-Public Use
  Company Number: BR-ORGANON-O2304BRA002852

PATIENT
  Sex: Female

DRUGS (2)
  1. ETONOGESTREL [Suspect]
     Active Substance: ETONOGESTREL
     Indication: Migraine
     Dosage: 1 IMPLANT
     Route: 059
     Dates: start: 20220316, end: 20230505
  2. ETONOGESTREL [Suspect]
     Active Substance: ETONOGESTREL
     Indication: Dysmenorrhoea

REACTIONS (10)
  - Blood loss anaemia [Unknown]
  - Contusion [Unknown]
  - Weight increased [Unknown]
  - Mood altered [Unknown]
  - Acne [Unknown]
  - Alopecia [Unknown]
  - Hormone level abnormal [Unknown]
  - Product use in unapproved indication [Unknown]
  - Drug ineffective for unapproved indication [Unknown]
  - Drug effective for unapproved indication [Unknown]

NARRATIVE: CASE EVENT DATE: 20220316
